FAERS Safety Report 10920246 (Version 1)
Quarter: 2015Q1

REPORT INFORMATION
  Report Type: Spontaneous
  Country: US (occurrence: None)
  Receive Date: 20150312
  Receipt Date: 20150312
  Transmission Date: 20150721
  Serious: Yes (Other)
  Sender: FDA-Public Use
  Company Number: None

PATIENT
  Age: 56 Year
  Sex: Female

DRUGS (1)
  1. ENBREL [Suspect]
     Active Substance: ETANERCEPT
     Indication: PSORIATIC ARTHROPATHY
     Dosage: INJECTABLE
     Route: 058
     Dates: start: 2013

REACTIONS (2)
  - Cervical dysplasia [None]
  - Neoplasm malignant [None]

NARRATIVE: CASE EVENT DATE: 20150212
